FAERS Safety Report 16185370 (Version 1)
Quarter: 2019Q2

REPORT INFORMATION
  Report Type: Spontaneous
  Country: CN (occurrence: CN)
  Receive Date: 20190411
  Receipt Date: 20190411
  Transmission Date: 20190711
  Serious: Yes (Death)
  Sender: FDA-Public Use
  Company Number: CN-NOVAST LABORATORIES, LTD-CN-2019NOV000241

PATIENT
  Age: 49 Year
  Sex: Male

DRUGS (2)
  1. CARISOPRODOL\ASPIRIN [Suspect]
     Active Substance: ASPIRIN\CARISOPRODOL
     Indication: PROPHYLAXIS
     Dosage: 100 MG/DAY
     Route: 065
  2. CLOPIDOGREL [Suspect]
     Active Substance: CLOPIDOGREL BISULFATE
     Indication: PROPHYLAXIS
     Dosage: 75 MG/DAY
     Route: 065

REACTIONS (1)
  - Ruptured cerebral aneurysm [Fatal]
